FAERS Safety Report 25080254 (Version 1)
Quarter: 2025Q1

REPORT INFORMATION
  Report Type: Report from Study
  Country: ES (occurrence: ES)
  Receive Date: 20250314
  Receipt Date: 20250314
  Transmission Date: 20250408
  Serious: Yes (Hospitalization)
  Sender: ABBVIE
  Company Number: ES-ABBVIE-6171513

PATIENT
  Age: 42 Year
  Sex: Male

DRUGS (6)
  1. HUMIRA [Suspect]
     Active Substance: ADALIMUMAB
     Indication: Colitis ulcerative
     Route: 058
     Dates: start: 20220510, end: 202404
  2. HYRIMOZ [Concomitant]
     Active Substance: ADALIMUMAB-ADAZ
     Indication: Product used for unknown indication
     Route: 058
     Dates: start: 20220515, end: 20240425
  3. OMEPRAZOLE [Concomitant]
     Active Substance: OMEPRAZOLE
     Indication: Dyspepsia
     Route: 048
     Dates: start: 20220315
  4. ACETAMINOPHEN [Concomitant]
     Active Substance: ACETAMINOPHEN
     Indication: Pain management
     Route: 048
     Dates: start: 20220315
  5. PIPERACILLIN [Concomitant]
     Active Substance: PIPERACILLIN
     Indication: Antibiotic prophylaxis
     Route: 041
     Dates: start: 20240419
  6. USTEKINUMAB [Concomitant]
     Active Substance: USTEKINUMAB
     Indication: Product used for unknown indication
     Route: 058
     Dates: start: 20240426

REACTIONS (2)
  - Diarrhoea [Recovered/Resolved]
  - Pyrexia [Recovered/Resolved]

NARRATIVE: CASE EVENT DATE: 20240419
